FAERS Safety Report 18240005 (Version 2)
Quarter: 2020Q4

REPORT INFORMATION
  Report Type: Spontaneous
  Country: US (occurrence: US)
  Receive Date: 20200908
  Receipt Date: 20201006
  Transmission Date: 20210113
  Serious: No
  Sender: FDA-Public Use
  Company Number: US-LUPIN PHARMACEUTICALS INC.-2020-05149

PATIENT
  Age: 3 Year
  Sex: Male
  Weight: 14.97 kg

DRUGS (2)
  1. CLOBAZAM TABLETS, 10 MG [Suspect]
     Active Substance: CLOBAZAM
     Indication: SEIZURE
     Dosage: 1 DOSAGE FORM, QD (AT NIGHT)
     Route: 048
     Dates: start: 20200812
  2. CLOBAZAM TABLETS, 10 MG [Suspect]
     Active Substance: CLOBAZAM
     Dosage: 0.5 DOSAGE FORM, QD HALF TABLET IN THE MORNING)
     Route: 048
     Dates: start: 20200812

REACTIONS (4)
  - Product storage error [Unknown]
  - Irritability [Unknown]
  - Insomnia [Not Recovered/Not Resolved]
  - Restlessness [Unknown]

NARRATIVE: CASE EVENT DATE: 20200808
